FAERS Safety Report 8842650 (Version 7)
Quarter: 2013Q3

REPORT INFORMATION
  Report Type: Spontaneous
  Country: US (occurrence: US)
  Receive Date: 20121016
  Receipt Date: 20130926
  Transmission Date: 20140515
  Serious: Yes (Death, Hospitalization)
  Sender: FDA-Public Use
  Company Number: US-B.I. PHARMACEUTICALS,INC./RIDGEFIELD-2012-BP-25372BP

PATIENT
  Age: 80 Year
  Sex: Female
  Weight: 70.31 kg

DRUGS (24)
  1. PRADAXA [Suspect]
     Indication: ANTICOAGULANT THERAPY
     Dosage: 300 MG
     Route: 048
     Dates: start: 20110118, end: 20110609
  2. PRADAXA [Suspect]
     Indication: ATRIAL FIBRILLATION
  3. PRADAXA [Suspect]
     Indication: PULMONARY EMBOLISM
  4. LISINOPRIL [Concomitant]
     Dosage: 40 MG
     Route: 048
  5. METOPROLOL SUCCINATE [Concomitant]
     Dosage: 100 MG
     Route: 048
  6. NORVASC [Concomitant]
  7. VENLAFAXINE HCL ER [Concomitant]
     Dosage: 37.5 MG
     Route: 048
  8. ASPIRIN [Concomitant]
     Dosage: 81 MG
     Route: 048
  9. LASIX [Concomitant]
     Route: 048
  10. VICODIN [Concomitant]
     Indication: PAIN
     Route: 048
  11. CELEXA [Concomitant]
     Dosage: 10 MG
  12. ERGOCALCIFEROL [Concomitant]
     Indication: VITAMIN D DEFICIENCY
     Route: 048
  13. GLIMEPIRIDE [Concomitant]
     Dosage: 1 MG
  14. LEVOTHYROXINE [Concomitant]
     Route: 048
  15. TRAZODONE [Concomitant]
     Indication: INSOMNIA
     Dosage: 50 MG
     Route: 048
  16. OXYGEN [Concomitant]
  17. PRILOSEC OTC [Concomitant]
     Dosage: 20 MG
  18. PAXIL [Concomitant]
     Dosage: 20 MG
  19. NITROSTAT [Concomitant]
     Route: 060
  20. PROMETHAZINE [Concomitant]
     Indication: NAUSEA
     Route: 048
  21. FISH OIL [Concomitant]
     Route: 048
  22. GLUCOSAMINE-CHONDROITIN [Concomitant]
     Route: 048
  23. METFORMIN [Concomitant]
     Route: 048
  24. CALCIUM-VITAMIN D [Concomitant]
     Route: 048

REACTIONS (2)
  - Gastrointestinal haemorrhage [Fatal]
  - Anaemia [Unknown]
